FAERS Safety Report 7276184-7 (Version None)
Quarter: 2011Q1

REPORT INFORMATION
  Report Type: 
  Country: None (occurrence: None)
  Receive Date: 20110204
  Receipt Date: 20110127
  Transmission Date: 20110831
  Serious: Yes (Hospitalization)
  Sender: FDA-Public Use
  Company Number: PHHO2011NZ01400

PATIENT
  Sex: Female
  Weight: 160.2 kg

DRUGS (4)
  1. RAD 666 / RAD 001A [Suspect]
     Indication: METASTATIC RENAL CELL CARCINOMA
     Dosage: 10 MG, QD
     Route: 048
     Dates: start: 20100901
  2. ZOLEDRONATE [Suspect]
     Indication: METASTATIC RENAL CELL CARCINOMA
     Dosage: 4 MG, 4-WEEKLY
     Route: 058
     Dates: start: 20100901
  3. ENOXAPARIN [Concomitant]
     Indication: DEEP VEIN THROMBOSIS
  4. RED BLOOD CELLS [Concomitant]

REACTIONS (3)
  - RENAL HAEMORRHAGE [None]
  - HAEMATURIA [None]
  - PELVIC PAIN [None]
